FAERS Safety Report 5748894-1 (Version None)
Quarter: 2008Q2

REPORT INFORMATION
  Report Type: 
  Country: None (occurrence: None)
  Receive Date: 20080522
  Receipt Date: 20080512
  Transmission Date: 20081010
  Serious: Yes (Hospitalization)
  Sender: FDA-Public Use
  Company Number: E2020-02372-SPO-GB

PATIENT
  Age: 81 Year
  Sex: Female
  Weight: 53.1 kg

DRUGS (3)
  1. ARICEPT [Suspect]
     Indication: DEMENTIA ALZHEIMER'S TYPE
     Dosage: 10 MG, 1 IN 1 D, ORAL
     Route: 048
     Dates: start: 20060201, end: 20080212
  2. DICLOFENAC SODIUM [Suspect]
     Indication: ARTHRITIS
     Dosage: 75 MG, 1 IN 1 D, ORAL
     Route: 048
     Dates: start: 20040101, end: 20071101
  3. OMEPRAZOLE [Concomitant]

REACTIONS (7)
  - BARRETT'S OESOPHAGUS [None]
  - EROSIVE OESOPHAGITIS [None]
  - GASTROINTESTINAL HAEMORRHAGE [None]
  - HAEMOGLOBIN DECREASED [None]
  - OESOPHAGEAL ULCER [None]
  - ORAL INTAKE REDUCED [None]
  - REFLUX OESOPHAGITIS [None]
